FAERS Safety Report 7108948-4 (Version None)
Quarter: 2010Q4

REPORT INFORMATION
  Report Type: 
  Country: None (occurrence: None)
  Receive Date: 20101117
  Receipt Date: 20101110
  Transmission Date: 20110411
  Serious: Yes (Hospitalization)
  Sender: FDA-Public Use
  Company Number: FR-PFIZER INC-2010144353

PATIENT
  Age: 53 Year
  Sex: Female

DRUGS (6)
  1. TAZOCILLINE [Suspect]
     Indication: INFECTION
     Dosage: UNK
     Route: 042
     Dates: start: 20100908, end: 20100913
  2. MICAFUNGIN [Suspect]
     Indication: INFECTIOUS DISEASE CARRIER
     Dosage: 100 MG, 1X/DAY
     Route: 042
     Dates: start: 20100908, end: 20100913
  3. KEPPRA [Concomitant]
     Dosage: UNK
  4. HYPNOVEL [Concomitant]
  5. MORPHINE [Concomitant]
     Dosage: UNK
  6. HYDROCORTISONE [Concomitant]
     Dosage: UNK

REACTIONS (2)
  - CYTOLYTIC HEPATITIS [None]
  - HEPATITIS [None]
